FAERS Safety Report 10350235 (Version 1)
Quarter: 2014Q3

REPORT INFORMATION
  Report Type: Spontaneous
  Country: US (occurrence: US)
  Receive Date: 20140730
  Receipt Date: 20140730
  Transmission Date: 20150326
  Serious: No
  Sender: FDA-Public Use
  Company Number: US-ABBVIE-13P-163-1179687-00

PATIENT
  Sex: Male

DRUGS (2)
  1. NIASPAN [Suspect]
     Active Substance: NIACIN
     Indication: EAR DISORDER
     Dates: start: 20131108, end: 20131212
  2. DIAMOX SEQUELS [Suspect]
     Active Substance: ACETAZOLAMIDE
     Indication: DEAFNESS
     Dates: start: 20131210

REACTIONS (7)
  - Abdominal pain upper [Recovered/Resolved]
  - Vomiting [Recovered/Resolved]
  - Flushing [Recovered/Resolved]
  - Abdominal discomfort [Recovered/Resolved]
  - Renal pain [Recovered/Resolved]
  - Dizziness [Not Recovered/Not Resolved]
  - Nausea [Not Recovered/Not Resolved]

NARRATIVE: CASE EVENT DATE: 20131210
